FAERS Safety Report 22119886 (Version 1)
Quarter: 2023Q1

REPORT INFORMATION
  Report Type: Spontaneous
  Country: US (occurrence: None)
  Receive Date: 20230321
  Receipt Date: 20230321
  Transmission Date: 20230417
  Serious: No
  Sender: FDA-Public Use
  Company Number: US-ROCHE-3125797

PATIENT
  Age: 54 Year
  Sex: Female
  Weight: 61.290 kg

DRUGS (3)
  1. ERIVEDGE [Suspect]
     Active Substance: VISMODEGIB
     Indication: Basal cell naevus syndrome
     Dosage: ONCE  A DAY ;ONGOING: YES
     Route: 048
     Dates: start: 20220606, end: 20220907
  2. ERIVEDGE [Suspect]
     Active Substance: VISMODEGIB
     Indication: Basal cell carcinoma
  3. ERIVEDGE [Suspect]
     Active Substance: VISMODEGIB
     Indication: Benign neoplasm

REACTIONS (8)
  - Fatigue [Unknown]
  - Taste disorder [Not Recovered/Not Resolved]
  - Rash [Unknown]
  - Alopecia [Not Recovered/Not Resolved]
  - Ageusia [Unknown]
  - Muscle spasms [Unknown]
  - Intentional product use issue [Unknown]
  - Dysgeusia [Unknown]

NARRATIVE: CASE EVENT DATE: 20220606
